FAERS Safety Report 23699197 (Version 1)
Quarter: 2024Q2

REPORT INFORMATION
  Report Type: Spontaneous
  Country: US (occurrence: US)
  Receive Date: 20240402
  Receipt Date: 20240402
  Transmission Date: 20240716
  Serious: No
  Sender: FDA-Public Use
  Company Number: US-THEA-2023001166

PATIENT
  Age: 84 Year
  Sex: Male

DRUGS (2)
  1. ZIOPTAN [Suspect]
     Active Substance: TAFLUPROST
     Indication: Glaucoma
     Dosage: BOTH EYES EVERY NIGHT
     Route: 047
     Dates: end: 202306
  2. COSOPT PF [Suspect]
     Active Substance: DORZOLAMIDE HYDROCHLORIDE\TIMOLOL MALEATE
     Indication: Glaucoma
     Dosage: BOTH EYES
     Route: 047
     Dates: start: 202305, end: 202306

REACTIONS (4)
  - Ocular hyperaemia [Unknown]
  - Eye irritation [Unknown]
  - Periorbital swelling [Unknown]
  - Eye pruritus [Unknown]

NARRATIVE: CASE EVENT DATE: 20230607
